FAERS Safety Report 5499890-3 (Version None)
Quarter: 2007Q4

REPORT INFORMATION
  Report Type: 
  Country: None (occurrence: None)
  Receive Date: 20071026
  Receipt Date: 20071015
  Transmission Date: 20080405
  Serious: Yes (Hospitalization, Other)
  Sender: FDA-Public Use
  Company Number: US-PFIZER INC-2007086849

PATIENT
  Sex: Female

DRUGS (9)
  1. GABAPENTIN [Suspect]
     Indication: NEUROPATHY
     Dosage: DAILY DOSE:3600MG-FREQ:800MG, 3 TIMES A DAY, 1200MG AT BEDTIME
  2. POTASSIUM CHLORIDE [Concomitant]
  3. TAMBOCOR [Concomitant]
  4. ATENOLOL [Concomitant]
  5. ALL OTHER THERAPEUTIC PRODUCTS [Concomitant]
  6. HYDROCHLOROTHIAZIDE [Concomitant]
  7. ASACOL [Concomitant]
  8. FLECAINIDE ACETATE [Concomitant]
  9. AZATHIOPRINE [Concomitant]

REACTIONS (5)
  - BODY HEIGHT DECREASED [None]
  - BONE DENSITY DECREASED [None]
  - FOOT FRACTURE [None]
  - NEUROPATHY [None]
  - SPINAL COMPRESSION FRACTURE [None]
